FAERS Safety Report 9296831 (Version 1)
Quarter: 2013Q2

REPORT INFORMATION
  Report Type: Report from Study
  Country: IN (occurrence: IN)
  Receive Date: 20130517
  Receipt Date: 20130517
  Transmission Date: 20140414
  Serious: No
  Sender: FDA-Public Use
  Company Number: IN-009507513-2012SP021114

PATIENT
  Age: 15 Year
  Sex: Female
  Weight: 64.9 kg

DRUGS (7)
  1. ASENAPINE MALEATE-SCHIZOPHRENIA [Suspect]
     Indication: PRODUCT USED FOR UNKNOWN INDICATION
     Dosage: 2.5 MG, BID
     Route: 060
     Dates: start: 20120123
  2. ASENAPINE MALEATE-SCHIZOPHRENIA [Suspect]
     Dosage: UNK UNK, UNKNOWN
     Route: 060
     Dates: start: 20120123
  3. ASENAPINE MALEATE-SCHIZOPHRENIA [Suspect]
     Dosage: UNK UNK, UNKNOWN
     Route: 060
     Dates: start: 20120123
  4. ASENAPINE MALEATE-SCHIZOPHRENIA [Suspect]
     Dosage: UNK UNK, UNKNOWN
     Route: 060
     Dates: start: 20120123
  5. ASENAPINE MALEATE-SCHIZOPHRENIA [Suspect]
     Dosage: UNK UNK, UNKNOWN
     Route: 060
     Dates: start: 20120123
  6. ASENAPINE MALEATE-SCHIZOPHRENIA [Suspect]
     Dosage: UNK UNK, UNKNOWN
     Route: 060
     Dates: start: 20120123
  7. LORAZEPAM [Concomitant]
     Indication: PRODUCT USED FOR UNKNOWN INDICATION
     Dosage: ANXIETY DUE TO SCHIZOPHRENIA
     Route: 048
     Dates: start: 20120213

REACTIONS (1)
  - Rash [Recovered/Resolved]
